FAERS Safety Report 25352618 (Version 3)
Quarter: 2025Q2

REPORT INFORMATION
  Report Type: Spontaneous
  Country: US (occurrence: US)
  Receive Date: 20250523
  Receipt Date: 20250626
  Transmission Date: 20250716
  Serious: No
  Sender: PFIZER
  Company Number: US-PFIZER INC-202500103332

PATIENT
  Age: 16 Year
  Sex: Male
  Weight: 65.77 kg

DRUGS (1)
  1. GENOTROPIN [Suspect]
     Active Substance: SOMATROPIN
     Indication: Androgen deficiency
     Dosage: ADMINISTERED IN THE ARM, STOMACH, OR LEG
     Dates: start: 2023

REACTIONS (5)
  - Product knowledge deficit [Unknown]
  - Device information output issue [Unknown]
  - Device power source issue [Unknown]
  - Product administered at inappropriate site [Unknown]
  - Off label use [Unknown]

NARRATIVE: CASE EVENT DATE: 20230101
